FAERS Safety Report 20570457 (Version 1)
Quarter: 2022Q1

REPORT INFORMATION
  Report Type: Spontaneous
  Country: US (occurrence: US)
  Receive Date: 20220309
  Receipt Date: 20220309
  Transmission Date: 20220424
  Serious: No
  Sender: FDA-Public Use
  Company Number: US-NOVARTISTESTPH-NVSC2022US053521

PATIENT
  Sex: Female

DRUGS (2)
  1. MEKINIST [Suspect]
     Active Substance: TRAMETINIB DIMETHYL SULFOXIDE
     Indication: Neoplasm malignant
     Dosage: 150 MG, BID
     Route: 048
     Dates: start: 202112
  2. TAFINLAR [Suspect]
     Active Substance: DABRAFENIB MESYLATE
     Indication: Neoplasm malignant
     Dosage: 1 DOSAGE FORM, QD
     Route: 048
     Dates: start: 202112

REACTIONS (1)
  - Visual impairment [Unknown]
